FAERS Safety Report 8020352-3 (Version None)
Quarter: 2012Q1

REPORT INFORMATION
  Report Type: 
  Country: None (occurrence: None)
  Receive Date: 20120103
  Receipt Date: 20120102
  Transmission Date: 20120608
  Serious: Yes (Hospitalization, Other)
  Sender: FDA-Public Use
  Company Number: BE-AMGEN-BELSP2011064967

PATIENT
  Age: 82 Year
  Sex: Male
  Weight: 75 kg

DRUGS (6)
  1. PANTOMUCOL                         /00350301/ [Concomitant]
     Dosage: 20 MG, QD
     Route: 048
  2. ZOCOR [Concomitant]
     Dosage: 20 MG, QD
     Route: 048
  3. WARFARIN SODIUM [Concomitant]
     Dosage: UNK UNK, BID
     Route: 048
  4. BISOPROLOL FUMARATE [Concomitant]
     Dosage: UNK UNK, QD
     Route: 048
  5. NPLATE [Suspect]
     Indication: IDIOPATHIC THROMBOCYTOPENIC PURPURA
     Dosage: 225 MUG, QWK
     Dates: start: 20111114
  6. BETASERC                           /00141801/ [Concomitant]
     Dosage: UNK UNK, QD
     Route: 048

REACTIONS (3)
  - GENERAL PHYSICAL HEALTH DETERIORATION [None]
  - ARTHRALGIA [None]
  - INTERNATIONAL NORMALISED RATIO ABNORMAL [None]
